FAERS Safety Report 5198148-X (Version None)
Quarter: 2006Q4

REPORT INFORMATION
  Report Type: 
  Country: None (occurrence: None)
  Receive Date: 20061227
  Receipt Date: 20061212
  Transmission Date: 20070319
  Serious: Yes (Other)
  Sender: FDA-Public Use
  Company Number: 2006152943

PATIENT
  Sex: Female

DRUGS (3)
  1. LYRICA [Suspect]
     Indication: NEURALGIA
     Dosage: 300 MG DAILY
  2. AMITRIPTYLINE HCL [Suspect]
     Indication: NEURALGIA
  3. TRAMADOL HCL [Suspect]
     Indication: NEURALGIA

REACTIONS (1)
  - EPILEPSY [None]
